FAERS Safety Report 13561609 (Version 2)
Quarter: 2017Q2

REPORT INFORMATION
  Report Type: Spontaneous
  Country: ES (occurrence: ES)
  Receive Date: 20170518
  Receipt Date: 20170616
  Transmission Date: 20170830
  Serious: Yes (Death, Life-Threatening)
  Sender: FDA-Public Use
  Company Number: ES-ALLERGAN-1720312US

PATIENT
  Age: 59 Year
  Sex: Female

DRUGS (15)
  1. PARACETAMOL [Concomitant]
     Active Substance: ACETAMINOPHEN
     Dosage: 1000 MG, Q8HR
     Dates: start: 20170422
  2. DIPRIVAN [Concomitant]
     Active Substance: PROPOFOL
     Dosage: 1 DF, QD
  3. OMEPRAZOL [Concomitant]
     Active Substance: OMEPRAZOLE
     Dosage: 40 MG, QD
     Dates: start: 20170314
  4. RIVOTRIL [Concomitant]
     Active Substance: CLONAZEPAM
     Dosage: 250 ML, QD
     Dates: start: 20170422
  5. CANCIDAS [Concomitant]
     Active Substance: CASPOFUNGIN ACETATE
     Dosage: 50 MG, UNK
     Dates: start: 20170326
  6. CEFTAZIDIME;AVIBACTAM - BP [Suspect]
     Active Substance: AVIBACTAM SODIUM\CEFTAZIDIME
     Indication: PRODUCT USED FOR UNKNOWN INDICATION
     Dosage: 1 G, Q8HR
     Route: 042
     Dates: start: 20170406, end: 20170421
  7. ALBUTEIN [Suspect]
     Active Substance: ALBUMIN HUMAN
     Dosage: 1 DF, Q12H
     Dates: start: 20170412
  8. NOLOTIL [Concomitant]
     Active Substance: METAMIZOLE
     Dosage: 2000 MG, Q8HR
     Dates: start: 20170422
  9. KONAKION [Concomitant]
     Active Substance: PHYTONADIONE
     Dosage: 10 MG, QD
     Dates: start: 20170411
  10. LINEZOLID. [Concomitant]
     Active Substance: LINEZOLID
     Dosage: 600 MG, Q12H
     Dates: start: 20170419
  11. NOREPINEPHRINE. [Concomitant]
     Active Substance: NOREPINEPHRINE
     Dosage: 10 ML, UNK
     Dates: start: 20170422
  12. OSMOFUNDIN [Concomitant]
     Dosage: 100 ML, Q8HR
     Dates: start: 20170422
  13. ANIDULAFUNGIN [Concomitant]
     Active Substance: ANIDULAFUNGIN
     Dosage: 100 MG, QD
     Dates: start: 20170421
  14. LEVETIRACETAM. [Concomitant]
     Active Substance: LEVETIRACETAM
     Dosage: 5 MG/ML, Q12H
     Dates: start: 20170422
  15. TYGACIL [Concomitant]
     Active Substance: TIGECYCLINE
     Dosage: 50 MG, Q12H
     Dates: start: 20170421

REACTIONS (2)
  - Brain oedema [Fatal]
  - Status epilepticus [Fatal]

NARRATIVE: CASE EVENT DATE: 20170421
